FAERS Safety Report 16216675 (Version 1)
Quarter: 2019Q2

REPORT INFORMATION
  Report Type: Spontaneous
  Country: PL (occurrence: PL)
  Receive Date: 20190419
  Receipt Date: 20190419
  Transmission Date: 20190711
  Serious: Yes (Other)
  Sender: FDA-Public Use
  Company Number: PHHY2019PL086409

PATIENT
  Sex: Female

DRUGS (3)
  1. INTERFERON [Concomitant]
     Active Substance: INTERFERON
     Indication: PRODUCT USED FOR UNKNOWN INDICATION
     Dosage: UNK
     Route: 065
     Dates: start: 199810
  2. HYDROXYUREA. [Concomitant]
     Active Substance: HYDROXYUREA
     Indication: PRODUCT USED FOR UNKNOWN INDICATION
     Dosage: UNK
     Route: 065
     Dates: start: 199809
  3. GLIVEC [Suspect]
     Active Substance: IMATINIB MESYLATE
     Indication: CHRONIC MYELOID LEUKAEMIA
     Dosage: UNK
     Route: 065
     Dates: start: 20010418

REACTIONS (10)
  - Bone disorder [Unknown]
  - Fracture [Unknown]
  - Bone density increased [Unknown]
  - Fracture displacement [Unknown]
  - Bone pain [Unknown]
  - Arthralgia [Unknown]
  - Femur fracture [Unknown]
  - Osteonecrosis [Unknown]
  - Spinal pain [Unknown]
  - Osteoporosis [Unknown]

NARRATIVE: CASE EVENT DATE: 2004
